FAERS Safety Report 5766010-7 (Version None)
Quarter: 2008Q2

REPORT INFORMATION
  Report Type: 
  Country: None (occurrence: None)
  Receive Date: 20080611
  Receipt Date: 20080530
  Transmission Date: 20081010
  Serious: Yes (Other)
  Sender: FDA-Public Use
  Company Number: US-PFIZER INC-2008045715

PATIENT
  Sex: Female
  Weight: 54 kg

DRUGS (3)
  1. CHANTIX [Suspect]
     Indication: SMOKING CESSATION THERAPY
  2. ACTONEL [Concomitant]
  3. PREMPRO [Concomitant]

REACTIONS (5)
  - BLINDNESS TRANSIENT [None]
  - ELECTROCARDIOGRAM ABNORMAL [None]
  - NAUSEA [None]
  - SMEAR CERVIX ABNORMAL [None]
  - VISION BLURRED [None]
